FAERS Safety Report 7809533-9 (Version None)
Quarter: 2011Q4

REPORT INFORMATION
  Report Type: 
  Country: None (occurrence: None)
  Receive Date: 20111012
  Receipt Date: 20111006
  Transmission Date: 20120403
  Serious: Yes (Other)
  Sender: FDA-Public Use
  Company Number: PHEH2011US06064

PATIENT
  Age: 67 Year
  Sex: Female

DRUGS (9)
  1. LASIX [Concomitant]
     Dosage: 40 MG, QD
  2. BENICAR [Concomitant]
     Dosage: 40 MG, QD
  3. PRILOSEC [Concomitant]
     Dosage: 20 MG, QD
  4. CITRICAL [Concomitant]
     Dosage: 600MG/CALCIUM 5 4 TIMES A DAY
  5. RECLAST [Suspect]
     Indication: OSTEOPOROSIS
     Dosage: UNK UKN, UNK
     Route: 042
  6. PRIMADOPHILUS [Concomitant]
     Dosage: 5 BILCFU PER DAY
  7. PREDNISONE [Concomitant]
     Dosage: 5 MG, QD
  8. CARVEDILOL [Concomitant]
     Dosage: 25 MG, BID
  9. VITAMIN D [Concomitant]
     Dosage: UNK UKN, UNK

REACTIONS (1)
  - SPINAL COMPRESSION FRACTURE [None]
